FAERS Safety Report 16117776 (Version 2)
Quarter: 2019Q1

REPORT INFORMATION
  Report Type: Spontaneous
  Country: US (occurrence: US)
  Receive Date: 20190326
  Receipt Date: 20190326
  Transmission Date: 20190418
  Serious: Yes (Hospitalization)
  Sender: FDA-Public Use
  Company Number: US-CELGENEUS-USA-20190209667

PATIENT
  Sex: Female
  Weight: 97.61 kg

DRUGS (1)
  1. POMALYST [Suspect]
     Active Substance: POMALIDOMIDE
     Indication: PLASMA CELL MYELOMA
     Dosage: 4 MILLIGRAM
     Route: 048
     Dates: start: 20180822, end: 20190228

REACTIONS (2)
  - Plasma cell myeloma [Not Recovered/Not Resolved]
  - Hip fracture [Not Recovered/Not Resolved]
